FAERS Safety Report 9389042 (Version 2)
Quarter: 2013Q3

REPORT INFORMATION
  Report Type: Report from Study
  Country: NL (occurrence: NL)
  Receive Date: 20130708
  Receipt Date: 20130716
  Transmission Date: 20140515
  Serious: Yes (Hospitalization)
  Sender: FDA-Public Use
  Company Number: NL-BAXTER-2013BAX025364

PATIENT
  Age: 8 Year
  Sex: Female

DRUGS (22)
  1. HOLOXAN, POEDER VOOR OPLOSSING VOOR INFUSIE [Suspect]
     Indication: NEOPLASM MALIGNANT
     Route: 065
     Dates: start: 20130510
  2. HOLOXAN, POEDER VOOR OPLOSSING VOOR INFUSIE [Suspect]
     Route: 065
     Dates: start: 20130511, end: 20130530
  3. HOLOXAN, POEDER VOOR OPLOSSING VOOR INFUSIE [Suspect]
     Route: 065
     Dates: start: 20130606
  4. VINCRISTIN [Suspect]
     Indication: NEOPLASM MALIGNANT
     Route: 042
     Dates: start: 20130510
  5. VINCRISTIN [Suspect]
     Route: 065
     Dates: start: 20130517
  6. VINCRISTIN [Suspect]
     Route: 042
     Dates: start: 20130523, end: 20130530
  7. VINCRISTIN [Suspect]
     Route: 065
     Dates: start: 20130613
  8. DACTINOMYCIN [Suspect]
     Indication: NEOPLASM MALIGNANT
     Route: 042
     Dates: start: 20130510, end: 20130530
  9. DACTINOMYCIN [Suspect]
     Route: 065
     Dates: start: 20130606
  10. TRAMADOL [Suspect]
     Indication: PRODUCT USED FOR UNKNOWN INDICATION
     Route: 065
     Dates: start: 20130522, end: 20130525
  11. TRAMADOL [Suspect]
     Route: 065
     Dates: start: 20130525, end: 20130528
  12. DOXORUBICIN [Suspect]
     Indication: NEOPLASM MALIGNANT
     Route: 065
     Dates: start: 20130510
  13. DOXORUBICIN [Suspect]
     Route: 065
     Dates: start: 20130606
  14. BEVACIZUMAB [Suspect]
     Indication: NEOPLASM MALIGNANT
     Route: 065
     Dates: start: 20130606
  15. POLYETHYLENE GLYCOL [Concomitant]
     Indication: PRODUCT USED FOR UNKNOWN INDICATION
     Route: 065
     Dates: start: 20130514
  16. POLYETHYLENE GLYCOL [Concomitant]
     Route: 065
     Dates: start: 20130523, end: 20130527
  17. PARACETAMOL [Concomitant]
     Indication: PRODUCT USED FOR UNKNOWN INDICATION
     Route: 065
     Dates: start: 20130528, end: 20130531
  18. PARACETAMOL [Concomitant]
     Route: 065
     Dates: start: 20130530, end: 20130604
  19. PARACETAMOL [Concomitant]
     Route: 065
     Dates: start: 20130530, end: 20130530
  20. PARACETAMOL [Concomitant]
     Route: 065
     Dates: start: 20130522, end: 20130528
  21. TRAMADOL HYDROCHLORIDE [Concomitant]
     Indication: PRODUCT USED FOR UNKNOWN INDICATION
     Route: 065
     Dates: start: 20130528, end: 20130531
  22. GABAPENTINE [Concomitant]
     Indication: PRODUCT USED FOR UNKNOWN INDICATION
     Route: 065
     Dates: start: 20130606

REACTIONS (4)
  - Neutropenic infection [Recovered/Resolved]
  - Ileus [Recovered/Resolved]
  - Hypertension [Not Recovered/Not Resolved]
  - Febrile neutropenia [Recovered/Resolved]
